FAERS Safety Report 5372934-5 (Version None)
Quarter: 2007Q2

REPORT INFORMATION
  Report Type: 
  Country: None (occurrence: None)
  Receive Date: 20070627
  Receipt Date: 20070615
  Transmission Date: 20071010
  Serious: Yes (Other)
  Sender: FDA-Public Use
  Company Number: US-PFIZER INC-2007050749

PATIENT
  Sex: Male
  Weight: 93.2 kg

DRUGS (7)
  1. CHANTIX [Suspect]
     Indication: SMOKING CESSATION THERAPY
     Dates: start: 20070101, end: 20070101
  2. SEPTRA DS [Suspect]
     Indication: FOLLICULITIS
  3. DRUG, UNSPECIFIED [Suspect]
  4. LIPITOR [Concomitant]
  5. ALLEGRA [Concomitant]
  6. LEXAPRO [Concomitant]
  7. ADDERALL XR 10 [Concomitant]

REACTIONS (8)
  - ADVERSE DRUG REACTION [None]
  - BLOOD PRESSURE INCREASED [None]
  - CEREBROVASCULAR ACCIDENT [None]
  - CONFUSIONAL STATE [None]
  - DISORIENTATION [None]
  - FEELING ABNORMAL [None]
  - FOLLICULITIS [None]
  - IMPAIRED DRIVING ABILITY [None]
